FAERS Safety Report 8268228-0 (Version None)
Quarter: 2012Q2

REPORT INFORMATION
  Report Type: 
  Country: None (occurrence: None)
  Receive Date: 20120409
  Receipt Date: 20120402
  Transmission Date: 20120825
  Serious: No
  Sender: FDA-Public Use
  Company Number: US-B.I. PHARMACEUTICALS,INC./RIDGEFIELD-2012-BP-06141BP

PATIENT
  Sex: Male

DRUGS (10)
  1. PRAVASTATIN [Concomitant]
     Dosage: 20 MG
     Route: 048
  2. DIGOXIN [Concomitant]
     Dosage: 0.25 MG
     Route: 048
  3. METFORMIN HCL [Concomitant]
     Indication: DIABETES MELLITUS
     Dosage: 2000 MG
     Route: 048
  4. RAMIPRIL [Concomitant]
     Dosage: 2.5 MG
     Route: 048
  5. PRADAXA [Suspect]
     Indication: ATRIAL FIBRILLATION
     Dosage: 300 MG
     Route: 048
     Dates: start: 20111201, end: 20120301
  6. GLIPIZIDE [Concomitant]
     Indication: DIABETES MELLITUS
     Dosage: 10 MG
     Route: 048
  7. PRADAXA [Suspect]
     Dosage: 300 MG
     Route: 048
     Dates: start: 20120301
  8. CARVEDILOL [Concomitant]
     Dosage: 25 MG
     Route: 048
  9. FISH OIL [Concomitant]
     Indication: PROPHYLAXIS
     Route: 048
  10. SPIRONOLACTONE [Concomitant]
     Dosage: 25 MG
     Route: 048

REACTIONS (3)
  - BLOOD PRESSURE DIASTOLIC DECREASED [None]
  - FATIGUE [None]
  - HEART RATE INCREASED [None]
